FAERS Safety Report 12956454 (Version 1)
Quarter: 2016Q4

REPORT INFORMATION
  Report Type: Spontaneous
  Country: CH (occurrence: CH)
  Receive Date: 20161119
  Receipt Date: 20161119
  Transmission Date: 20170207
  Serious: Yes (Other)
  Sender: FDA-Public Use
  Company Number: CH-BAXTER-2016BAX057666

PATIENT
  Age: 64 Year
  Sex: Female

DRUGS (20)
  1. FLUOROURACIL. [Suspect]
     Active Substance: FLUOROURACIL
     Indication: BREAST CANCER METASTATIC
     Dosage: ADJUVANT CHEMOTHERAPY
     Route: 065
     Dates: start: 200202, end: 200207
  2. LETROZOLE. [Suspect]
     Active Substance: LETROZOLE
     Indication: INVASIVE DUCTAL BREAST CARCINOMA
     Dosage: PALLIATIVE ENDOCRINE THERAPY
     Route: 065
     Dates: start: 201209, end: 201302
  3. DOCETAXEL. [Suspect]
     Active Substance: DOCETAXEL
     Indication: BREAST CANCER METASTATIC
     Dosage: PALLIATIVE SECOND LINE CHEMOTHERAPY
     Route: 065
     Dates: start: 201408
  4. TAMOXIFEN [Suspect]
     Active Substance: TAMOXIFEN
     Indication: INVASIVE DUCTAL BREAST CARCINOMA
  5. FULVESTRANT [Suspect]
     Active Substance: FULVESTRANT
     Indication: BREAST CANCER METASTATIC
     Dosage: PALLIATIVE ENDOCRINE THERAPY
     Route: 065
     Dates: start: 201302, end: 201309
  6. ENDOXAN 1 G [Suspect]
     Active Substance: CYCLOPHOSPHAMIDE
     Indication: BREAST CANCER METASTATIC
     Dosage: ADJUVANT CHEMOTHERAPY
     Route: 065
     Dates: start: 200202, end: 200207
  7. LETROZOLE. [Suspect]
     Active Substance: LETROZOLE
     Indication: BREAST CANCER METASTATIC
     Dosage: ADJUVANT ENDOCRINE THERAPY
     Route: 065
     Dates: start: 200701, end: 201201
  8. EXEMESTANE. [Suspect]
     Active Substance: EXEMESTANE
     Indication: BREAST CANCER METASTATIC
     Dosage: PALLIATIVE ENDOCRINE THERAPY
     Route: 065
     Dates: start: 201309, end: 201406
  9. METHOTREXATE. [Suspect]
     Active Substance: METHOTREXATE
     Indication: BREAST CANCER METASTATIC
     Dosage: ADJUVANT CHEMOTHERAPY
     Route: 065
     Dates: start: 200202, end: 200207
  10. METHOTREXATE. [Suspect]
     Active Substance: METHOTREXATE
     Indication: INVASIVE DUCTAL BREAST CARCINOMA
  11. FULVESTRANT [Suspect]
     Active Substance: FULVESTRANT
     Indication: INVASIVE DUCTAL BREAST CARCINOMA
  12. METHOTREXATE. [Suspect]
     Active Substance: METHOTREXATE
     Indication: BREAST CANCER METASTATIC
     Route: 065
     Dates: start: 201412, end: 201506
  13. PEGYLATED LIPOSOMAL DOXORUBICIN [Suspect]
     Active Substance: DOXORUBICIN
     Indication: INVASIVE DUCTAL BREAST CARCINOMA
  14. METHOTREXATE. [Suspect]
     Active Substance: METHOTREXATE
     Indication: INVASIVE DUCTAL BREAST CARCINOMA
  15. FLUOROURACIL. [Suspect]
     Active Substance: FLUOROURACIL
     Indication: INVASIVE DUCTAL BREAST CARCINOMA
  16. TAMOXIFEN [Suspect]
     Active Substance: TAMOXIFEN
     Indication: BREAST CANCER METASTATIC
     Dosage: ADJUVANT ENDOCRINE THERAPY
     Route: 065
     Dates: start: 200201, end: 200701
  17. EXEMESTANE. [Suspect]
     Active Substance: EXEMESTANE
     Indication: INVASIVE DUCTAL BREAST CARCINOMA
  18. PEGYLATED LIPOSOMAL DOXORUBICIN [Suspect]
     Active Substance: DOXORUBICIN
     Indication: BREAST CANCER METASTATIC
     Dosage: PALLIATIVE 1ST LINE CHEMOTHERAPY
     Route: 065
     Dates: start: 201406, end: 201407
  19. DOCETAXEL. [Suspect]
     Active Substance: DOCETAXEL
     Indication: INVASIVE DUCTAL BREAST CARCINOMA
  20. ENDOXAN 1 G [Suspect]
     Active Substance: CYCLOPHOSPHAMIDE
     Indication: INVASIVE DUCTAL BREAST CARCINOMA
     Route: 065
     Dates: start: 201412, end: 201506

REACTIONS (10)
  - Osteopenia [Unknown]
  - Metastases to lung [Unknown]
  - Breast cancer metastatic [Unknown]
  - Deep vein thrombosis [Unknown]
  - Disease progression [Unknown]
  - Metastases to bone [Unknown]
  - Disease recurrence [Unknown]
  - Metastases to lymph nodes [Unknown]
  - Toxicity to various agents [Unknown]
  - Lymphatic disorder [Unknown]

NARRATIVE: CASE EVENT DATE: 201205
